FAERS Safety Report 10143120 (Version 1)
Quarter: 2014Q2

REPORT INFORMATION
  Report Type: Spontaneous
  Country: US (occurrence: None)
  Receive Date: 20140429
  Receipt Date: 20140429
  Transmission Date: 20141212
  Serious: Yes (Disabling)
  Sender: FDA-Public Use
  Company Number: None

PATIENT
  Age: 31 Year
  Sex: Female
  Weight: 80.29 kg

DRUGS (1)
  1. CIPROFLOXACIN 250MG [Suspect]
     Indication: URINARY TRACT INFECTION
     Route: 048
     Dates: start: 20140216, end: 20140226

REACTIONS (3)
  - Myalgia [None]
  - Neuropathy peripheral [None]
  - Muscle spasms [None]
